FAERS Safety Report 7746922-5 (Version None)
Quarter: 2011Q3

REPORT INFORMATION
  Report Type: 
  Country: None (occurrence: None)
  Receive Date: 20110913
  Receipt Date: 20110830
  Transmission Date: 20111222
  Serious: Yes (Other)
  Sender: FDA-Public Use
  Company Number: PHHY2011DE77990

PATIENT
  Sex: Female

DRUGS (3)
  1. DIOVAN HCT [Suspect]
     Indication: HYPERTENSION
     Dosage: UNK UKN, UNK
     Route: 048
     Dates: start: 20110701
  2. CLONIDINE [Concomitant]
     Dosage: UNK UKN, UNK
  3. DIOVAN [Suspect]
     Indication: HYPERTENSION
     Dosage: 80 MG, PER DAY
     Dates: start: 20110701

REACTIONS (7)
  - DIZZINESS [None]
  - RESTLESS LEGS SYNDROME [None]
  - DRUG INEFFECTIVE [None]
  - PERICARDIAL EFFUSION [None]
  - SYNCOPE [None]
  - CONCOMITANT DISEASE AGGRAVATED [None]
  - BLOOD PRESSURE FLUCTUATION [None]
